FAERS Safety Report 22125314 (Version 1)
Quarter: 2023Q1

REPORT INFORMATION
  Report Type: Report from Study
  Country: KR (occurrence: None)
  Receive Date: 20230322
  Receipt Date: 20230322
  Transmission Date: 20230417
  Serious: Yes (Hospitalization)
  Sender: FDA-Public Use
  Company Number: KR-Eisai Medical Research-EC-2022-115166

PATIENT
  Age: 53 Year
  Sex: Female
  Weight: 81.5 kg

DRUGS (20)
  1. LENVIMA [Suspect]
     Active Substance: LENVATINIB
     Indication: Endometrial cancer
     Route: 048
     Dates: start: 20220301, end: 20220331
  2. LENVIMA [Suspect]
     Active Substance: LENVATINIB
     Route: 048
     Dates: start: 20220401, end: 20220501
  3. LENVIMA [Suspect]
     Active Substance: LENVATINIB
     Route: 048
     Dates: start: 20220502, end: 20220513
  4. LENVIMA [Suspect]
     Active Substance: LENVATINIB
     Route: 048
     Dates: start: 20220722, end: 20221013
  5. KEYTRUDA [Suspect]
     Active Substance: PEMBROLIZUMAB
     Indication: Endometrial cancer
     Route: 041
     Dates: start: 20220302, end: 20220302
  6. KEYTRUDA [Suspect]
     Active Substance: PEMBROLIZUMAB
     Route: 041
     Dates: start: 20220402, end: 20220402
  7. KEYTRUDA [Suspect]
     Active Substance: PEMBROLIZUMAB
     Route: 041
     Dates: start: 20220502, end: 20220502
  8. KEYTRUDA [Suspect]
     Active Substance: PEMBROLIZUMAB
     Route: 041
     Dates: start: 20220820, end: 20220820
  9. KEYTRUDA [Suspect]
     Active Substance: PEMBROLIZUMAB
     Route: 041
     Dates: start: 20220918, end: 20220918
  10. NALOXONE HYDROCHLORIDE\OXYCODONE HYDROCHLORIDE [Concomitant]
     Active Substance: NALOXONE HYDROCHLORIDE\OXYCODONE HYDROCHLORIDE
     Indication: Pain
     Dosage: 5/10/MG
     Route: 048
     Dates: start: 20220202, end: 20221018
  11. MG OXIDE [Concomitant]
     Indication: Constipation
     Dates: start: 20220205, end: 20221018
  12. ZOLPIDEM [Concomitant]
     Active Substance: ZOLPIDEM TARTRATE
     Indication: Insomnia
     Dosage: 0.5 TAB
     Route: 048
     Dates: start: 20220301, end: 20221018
  13. SUSPEN 8 HOURS ER [Concomitant]
     Indication: Cancer pain
     Route: 048
     Dates: start: 20220302, end: 20221018
  14. BESZYME [Concomitant]
     Indication: Dyspepsia
     Route: 048
     Dates: start: 20220302, end: 20220702
  15. DONGA GASTER [Concomitant]
     Indication: Dyspepsia
     Route: 048
     Dates: start: 20220302, end: 20221018
  16. DONGA GASTER [Concomitant]
     Route: 042
     Dates: start: 20220701, end: 20220701
  17. VESICARE [Concomitant]
     Active Substance: SOLIFENACIN SUCCINATE
  18. NORVASC [Concomitant]
     Active Substance: AMLODIPINE BESYLATE
     Indication: Hypertension
     Route: 048
     Dates: start: 20220502, end: 20220601
  19. HYDRALAZIINE HCL [Concomitant]
  20. NEXIUM [Concomitant]
     Active Substance: ESOMEPRAZOLE MAGNESIUM
     Indication: Nausea
     Route: 048
     Dates: start: 20220502, end: 20220601

REACTIONS (3)
  - Cholecystitis [Recovered/Resolved]
  - Alanine aminotransferase increased [Recovered/Resolved]
  - Aspartate aminotransferase increased [Recovered/Resolved]

NARRATIVE: CASE EVENT DATE: 20220513
